FAERS Safety Report 7689374-6 (Version None)
Quarter: 2011Q3

REPORT INFORMATION
  Report Type: 
  Country: None (occurrence: None)
  Receive Date: 20110817
  Receipt Date: 20100903
  Transmission Date: 20111222
  Serious: No
  Sender: FDA-Public Use
  Company Number: US-BAYER-201035381NA

PATIENT
  Sex: Female

DRUGS (2)
  1. IBUPROFEN [Concomitant]
  2. MIRENA [Suspect]
     Indication: CONTRACEPTION
     Dosage: 20 ?G/D, CONT
     Route: 015
     Dates: start: 20100818

REACTIONS (4)
  - NAUSEA [None]
  - VOMITING [None]
  - MENSTRUAL DISORDER [None]
  - MIGRAINE [None]
